FAERS Safety Report 11020270 (Version 1)
Quarter: 2015Q2

REPORT INFORMATION
  Report Type: Report from Study
  Country: DE (occurrence: DE)
  Receive Date: 20150413
  Receipt Date: 20150413
  Transmission Date: 20150821
  Serious: Yes (Hospitalization)
  Sender: FDA-Public Use
  Company Number: DE-ROCHE-1562724

PATIENT
  Age: 76 Year
  Sex: Male
  Weight: 107 kg

DRUGS (13)
  1. 5-FLUOROURACIL [Concomitant]
     Active Substance: FLUOROURACIL
     Dosage: 3600-4800MG
     Route: 041
     Dates: start: 20130513
  2. IRINOTECAN [Concomitant]
     Active Substance: IRINOTECAN
     Indication: COLORECTAL CANCER
     Route: 042
     Dates: start: 20130513
  3. GLIMEPIRID [Concomitant]
     Active Substance: GLIMEPIRIDE
     Indication: TYPE 2 DIABETES MELLITUS
     Route: 065
     Dates: start: 20120313
  4. BEVACIZUMAB [Suspect]
     Active Substance: BEVACIZUMAB
     Indication: COLORECTAL CANCER
     Route: 042
     Dates: start: 20130513
  5. AMOXICILLIN. [Concomitant]
     Active Substance: AMOXICILLIN
     Indication: PHARYNGITIS
     Route: 065
     Dates: start: 20140617
  6. INNOHEP [Concomitant]
     Active Substance: TINZAPARIN SODIUM
     Indication: SUBCLAVIAN ARTERY THROMBOSIS
     Route: 065
     Dates: start: 20130812
  7. LOSARTAN [Concomitant]
     Active Substance: LOSARTAN
     Indication: HYPERTENSION
     Route: 065
     Dates: start: 20130722
  8. NOVAMINSULFON [Concomitant]
     Active Substance: METAMIZOLE
     Indication: IMPAIRED HEALING
  9. 5-FLUOROURACIL [Concomitant]
     Active Substance: FLUOROURACIL
     Indication: COLORECTAL CANCER
     Dosage: 600-800MG
     Route: 040
     Dates: start: 20130513
  10. FOLINIC ACID [Concomitant]
     Active Substance: LEUCOVORIN
     Indication: COLORECTAL CANCER
     Route: 011
     Dates: start: 20130513
  11. LOPERAMID [Concomitant]
     Active Substance: LOPERAMIDE
     Indication: DIARRHOEA
     Route: 065
     Dates: start: 20130610
  12. DEXAGENT-OPHTAL [Concomitant]
     Indication: CONJUNCTIVITIS
     Route: 065
     Dates: start: 20140317, end: 20140402
  13. AMLODIPIN [Concomitant]
     Active Substance: AMLODIPINE BESYLATE
     Indication: HYPERTENSION
     Route: 065
     Dates: start: 20140129

REACTIONS (1)
  - Pneumonitis [Recovered/Resolved]

NARRATIVE: CASE EVENT DATE: 20150309
